FAERS Safety Report 7424189-5 (Version None)
Quarter: 2011Q2

REPORT INFORMATION
  Report Type: 
  Country: None (occurrence: None)
  Receive Date: 20110419
  Receipt Date: 20110412
  Transmission Date: 20111010
  Serious: Yes (Hospitalization, Disabling, Other)
  Sender: FDA-Public Use
  Company Number: US-MERCK-0812USA01748

PATIENT
  Age: 47 Year
  Sex: Female
  Weight: 93 kg

DRUGS (7)
  1. FOSAMAX [Suspect]
     Route: 048
     Dates: start: 20030601
  2. FOSAMAX [Suspect]
     Indication: OSTEOPOROSIS
     Route: 048
     Dates: start: 20020101, end: 20060101
  3. PAXIL [Concomitant]
     Route: 065
  4. NORTRIPTYLINE [Concomitant]
     Indication: ANXIETY
     Route: 048
  5. FOSAMAX [Suspect]
     Route: 048
     Dates: start: 19980101, end: 20040101
  6. PREMARIN [Concomitant]
     Route: 065
  7. XANAX [Concomitant]
     Indication: ANXIETY
     Route: 048

REACTIONS (73)
  - PAIN [None]
  - GINGIVAL PAIN [None]
  - EMBOLISM ARTERIAL [None]
  - ADVERSE EVENT [None]
  - OVERDOSE [None]
  - CONSTIPATION [None]
  - WEIGHT INCREASED [None]
  - TOOTH FRACTURE [None]
  - BACK PAIN [None]
  - OSTEOMYELITIS [None]
  - DEEP VEIN THROMBOSIS [None]
  - INAPPROPRIATE SCHEDULE OF DRUG ADMINISTRATION [None]
  - OSTEOARTHRITIS [None]
  - RASH [None]
  - OEDEMA PERIPHERAL [None]
  - SCIATICA [None]
  - MICTURITION URGENCY [None]
  - PERIARTHRITIS [None]
  - FALL [None]
  - CONTUSION [None]
  - JAW DISORDER [None]
  - SCOLIOSIS [None]
  - OSTEONECROSIS OF JAW [None]
  - ABDOMINAL PAIN [None]
  - DYSPNOEA AT REST [None]
  - PRURITUS [None]
  - INCREASED UPPER AIRWAY SECRETION [None]
  - ANXIETY [None]
  - INCONTINENCE [None]
  - HYPERSENSITIVITY [None]
  - HOT FLUSH [None]
  - ABDOMINAL DISCOMFORT [None]
  - SPINAL OSTEOARTHRITIS [None]
  - ORTHOPNOEA [None]
  - EDENTULOUS [None]
  - ILIAC ARTERY OCCLUSION [None]
  - PNEUMONIA [None]
  - FATIGUE [None]
  - STOMATITIS [None]
  - HEADACHE [None]
  - FISTULA DISCHARGE [None]
  - CAROTID ARTERY DISEASE [None]
  - BLOOD CHOLESTEROL INCREASED [None]
  - HAEMORRHAGE [None]
  - ARTERIOSCLEROSIS [None]
  - EXOSTOSIS [None]
  - CORONARY ARTERY DISEASE [None]
  - RHINITIS ALLERGIC [None]
  - DRUG HYPERSENSITIVITY [None]
  - TOOTH ABSCESS [None]
  - TARSAL TUNNEL SYNDROME [None]
  - ABSCESS [None]
  - PULMONARY EMBOLISM [None]
  - BRONCHITIS [None]
  - DRUG INEFFECTIVE [None]
  - CYSTOCELE [None]
  - PANIC DISORDER WITH AGORAPHOBIA [None]
  - TOOTH INFECTION [None]
  - INSOMNIA [None]
  - NOCTURIA [None]
  - DYSPNOEA [None]
  - DECREASED APPETITE [None]
  - BLISTER [None]
  - CHEST PAIN [None]
  - DEPRESSION [None]
  - CHRONIC OBSTRUCTIVE PULMONARY DISEASE [None]
  - PULPITIS DENTAL [None]
  - URINARY INCONTINENCE [None]
  - POLLAKIURIA [None]
  - TREATMENT NONCOMPLIANCE [None]
  - TOOTHACHE [None]
  - STRESS [None]
  - FIBROSIS [None]
